FAERS Safety Report 4313103-7 (Version None)
Quarter: 2004Q1

REPORT INFORMATION
  Report Type: 
  Country: None (occurrence: None)
  Receive Date: 20040304
  Receipt Date: 20040212
  Transmission Date: 20041129
  Serious: Yes (Hospitalization)
  Sender: FDA-Public Use
  Company Number: FR_040203600

PATIENT
  Sex: Female

DRUGS (4)
  1. XIGRIS [Suspect]
     Indication: RENAL FAILURE
     Dates: start: 20040211
  2. XIGRIS [Suspect]
     Indication: SEPTIC SHOCK
     Dates: start: 20040211
  3. HEPARIN [Concomitant]
  4. LOVENOX (HEPARIN-FRACTION) [Concomitant]

REACTIONS (1)
  - THROMBOCYTOPENIA [None]
